FAERS Safety Report 14628215 (Version 1)
Quarter: 2018Q1

REPORT INFORMATION
  Report Type: Spontaneous
  Country: US (occurrence: US)
  Receive Date: 20180312
  Receipt Date: 20180312
  Transmission Date: 20180509
  Serious: No
  Sender: FDA-Public Use
  Company Number: US-ALLERGAN-1732444US

PATIENT
  Age: 70 Year
  Sex: Female
  Weight: 49.89 kg

DRUGS (2)
  1. ESTRACE [Suspect]
     Active Substance: ESTRADIOL
     Indication: ATROPHIC VULVOVAGINITIS
  2. ESTRACE [Suspect]
     Active Substance: ESTRADIOL
     Indication: MENOPAUSAL SYMPTOMS
     Dosage: 1 G, BI-WEEKLY
     Route: 067
     Dates: start: 20170306, end: 201705

REACTIONS (3)
  - Hair texture abnormal [Unknown]
  - Alopecia [Recovering/Resolving]
  - Depression [Unknown]

NARRATIVE: CASE EVENT DATE: 201704
